FAERS Safety Report 4486687-6 (Version None)
Quarter: 2004Q4

REPORT INFORMATION
  Report Type: 
  Country: None (occurrence: None)
  Receive Date: 20041021
  Receipt Date: 20041008
  Transmission Date: 20050328
  Serious: Yes (Other)
  Sender: FDA-Public Use
  Company Number: 2004238143US

PATIENT
  Sex: Male
  Weight: 113.4 kg

DRUGS (9)
  1. BEXTRA [Suspect]
     Indication: ARTHRITIS
  2. PRAVACHOL [Concomitant]
  3. ALLOPURINOL [Concomitant]
  4. ALTACE [Concomitant]
  5. FUROSEMIDE [Concomitant]
  6. POTASSIUM CHLORIDE [Concomitant]
  7. GLUCOSAMINE W/CHONDROITIN SULFATES (MANGANESE) [Concomitant]
  8. ACETYLSALICYLIC ACID [Concomitant]
  9. NITROGLICERINA [Concomitant]

REACTIONS (7)
  - BARRETT'S OESOPHAGUS [None]
  - CHEST PAIN [None]
  - DUODENAL ULCER [None]
  - GASTROINTESTINAL HAEMORRHAGE [None]
  - GASTROOESOPHAGEAL REFLUX DISEASE [None]
  - HIATUS HERNIA [None]
  - OESOPHAGITIS [None]
